FAERS Safety Report 11239310 (Version 1)
Quarter: 2015Q3

REPORT INFORMATION
  Report Type: Spontaneous
  Country: US (occurrence: None)
  Receive Date: 20150701
  Receipt Date: 20150701
  Transmission Date: 20151125
  Serious: No
  Sender: FDA-Public Use
  Company Number: None

PATIENT
  Age: 56 Year
  Sex: Male

DRUGS (11)
  1. NAPROXEN SODIUM. [Concomitant]
     Active Substance: NAPROXEN SODIUM
     Indication: MUSCLE RELAXANT THERAPY
  2. ATORVASTATIN 20 MG GREENSTONE [Suspect]
     Active Substance: ATORVASTATIN
     Indication: BACK INJURY
     Dosage: AT BEDTIME, BY MOUTH
     Dates: start: 2010, end: 2015
  3. ATORVASTATIN 20 MG GREENSTONE [Suspect]
     Active Substance: ATORVASTATIN
     Indication: ILL-DEFINED DISORDER
     Dosage: AT BEDTIME, BY MOUTH
     Dates: start: 2010, end: 2015
  4. OXAPROZIN. [Concomitant]
     Active Substance: OXAPROZIN
     Indication: PAIN
  5. LISINOPRIL. [Concomitant]
     Active Substance: LISINOPRIL
  6. METOPROLOL [Suspect]
     Active Substance: METOPROLOL
     Indication: MYOCARDIAL INFARCTION
  7. ASPIRIN. [Concomitant]
     Active Substance: ASPIRIN
     Indication: MUSCLE RELAXANT THERAPY
  8. OXAPROZIN. [Concomitant]
     Active Substance: OXAPROZIN
     Indication: MUSCLE RELAXANT THERAPY
  9. METOPROLOL [Suspect]
     Active Substance: METOPROLOL
     Indication: PAIN
  10. NAPROXEN SODIUM. [Concomitant]
     Active Substance: NAPROXEN SODIUM
     Indication: PAIN
  11. STOOL SOFTENER [Concomitant]
     Active Substance: DOCUSATE CALCIUM
     Indication: CONSTIPATION

REACTIONS (6)
  - Chest pain [None]
  - Road traffic accident [None]
  - Loss of consciousness [None]
  - Palpitations [None]
  - Hypophagia [None]
  - Confusional state [None]

NARRATIVE: CASE EVENT DATE: 20150312
